FAERS Safety Report 25149652 (Version 1)
Quarter: 2025Q2

REPORT INFORMATION
  Report Type: Spontaneous
  Country: RO (occurrence: RO)
  Receive Date: 20250402
  Receipt Date: 20250402
  Transmission Date: 20250716
  Serious: Yes (Other)
  Sender: GLAND PHARMA
  Company Number: RO-GLANDPHARMA-RO-2025GLNLIT00893

PATIENT
  Age: 8 Year
  Sex: Female

DRUGS (3)
  1. DORZOLAMIDE HYDROCHLORIDE AND TIMOLOL MALEATE [Suspect]
     Active Substance: DORZOLAMIDE HYDROCHLORIDE\TIMOLOL MALEATE
     Indication: Glaucoma
     Route: 061
  2. DORZOLAMIDE HYDROCHLORIDE AND TIMOLOL MALEATE [Suspect]
     Active Substance: DORZOLAMIDE HYDROCHLORIDE\TIMOLOL MALEATE
     Route: 061
  3. PROSTAGLANDIN E1 [Concomitant]
     Active Substance: ALPROSTADIL
     Indication: Glaucoma
     Route: 065

REACTIONS (3)
  - Conjunctival deposit [Recovered/Resolved]
  - Aniridia [Unknown]
  - Dry eye [Unknown]
